FAERS Safety Report 7152856-X (Version None)
Quarter: 2010Q4

REPORT INFORMATION
  Report Type: 
  Country: None (occurrence: None)
  Receive Date: 20101130
  Receipt Date: 20101118
  Transmission Date: 20110411
  Serious: Yes (Death, Hospitalization, Other)
  Sender: FDA-Public Use
  Company Number: 021521

PATIENT
  Sex: Male

DRUGS (32)
  1. LACOSAMIDE [Suspect]
     Indication: CONVULSION
     Dosage: SEE IMAGE
     Route: 042
     Dates: start: 20101022, end: 20101022
  2. LACOSAMIDE [Suspect]
     Indication: CONVULSION
     Dosage: SEE IMAGE
     Route: 042
     Dates: start: 20101023, end: 20101028
  3. KEPPRA [Concomitant]
  4. LABETALOL HCL [Concomitant]
  5. OMEPRAZOLE [Concomitant]
  6. POTASSIUM CHLORIDE [Concomitant]
  7. POTASSIUM CHLORIDE [Concomitant]
  8. FENTANYL CITRATE [Concomitant]
  9. PROPOFOL [Concomitant]
  10. PHENYLEPHRINE [Concomitant]
  11. SODIUM CHLORIDE [Concomitant]
  12. ACETAMINOPHEN [Concomitant]
  13. HYDRALAZINE [Concomitant]
  14. BISACODYL [Concomitant]
  15. SODIUM BIPHOSPHATE [Concomitant]
  16. PERCOCET [Concomitant]
  17. OXYCODONE [Concomitant]
  18. ESOMEPRAZOLE SODIUM [Concomitant]
  19. ALBUTEROL SULFATE [Concomitant]
  20. DOCUSATE SODIUM W/SENNOSIDE A+B [Concomitant]
  21. MINERAL OIL EMULSION [Concomitant]
  22. HEPARIN [Concomitant]
  23. ANCEF /00288502/ [Concomitant]
  24. NORMAL SALINE [Concomitant]
  25. HALDOL [Concomitant]
  26. METOPROLOL TARTRATE [Concomitant]
  27. CEFEPIME [Concomitant]
  28. VANCOMYCIN [Concomitant]
  29. METRONIDAZOLE [Concomitant]
  30. METHADONE [Concomitant]
  31. TRAZODONE [Concomitant]
  32. NEXIUM [Concomitant]

REACTIONS (15)
  - ARTERIOSCLEROSIS [None]
  - BIFASCICULAR BLOCK [None]
  - BRAIN STEM INFARCTION [None]
  - BUNDLE BRANCH BLOCK RIGHT [None]
  - CARDIAC ARREST [None]
  - CEREBRAL ISCHAEMIA [None]
  - CONTUSION [None]
  - INTRACRANIAL PRESSURE INCREASED [None]
  - ISCHAEMIC STROKE [None]
  - LEFT ATRIAL DILATATION [None]
  - PUPILS UNEQUAL [None]
  - RIGHT ATRIAL DILATATION [None]
  - SUBARACHNOID HAEMORRHAGE [None]
  - SUBDURAL HAEMATOMA [None]
  - VASOSPASM [None]
